FAERS Safety Report 4757792-1 (Version None)
Quarter: 2005Q3

REPORT INFORMATION
  Report Type: 
  Country: None (occurrence: None)
  Receive Date: 20050830
  Receipt Date: 20050818
  Transmission Date: 20060218
  Serious: Yes (Death)
  Sender: FDA-Public Use
  Company Number: 2004001946

PATIENT
  Age: 43 Year
  Sex: Male

DRUGS (7)
  1. VIAGRA [Suspect]
     Indication: ERECTILE DYSFUNCTION
     Dosage: 12.5 MG (PRN), ORAL
     Route: 048
     Dates: start: 20030916, end: 20031212
  2. MAGNESIUM HYDROXIDE (MAGNESIUM HYDROXIDE) [Concomitant]
  3. ZACPAC (AMOXICILLIN TRIHYDRATE, CLARITHROMYCIN, PANTOPRAZOLE SODIUM) [Concomitant]
  4. CODEINE PHOSPHATE AND ACETAMINOPHEN [Concomitant]
  5. FUSIDIC ACID [Concomitant]
  6. IBUPROFEN [Concomitant]
  7. METHADONE HCL [Concomitant]

REACTIONS (5)
  - DIARRHOEA [None]
  - HYPERHIDROSIS [None]
  - LOSS OF CONSCIOUSNESS [None]
  - MALAISE [None]
  - RESUSCITATION [None]
